FAERS Safety Report 26129472 (Version 1)
Quarter: 2025Q4

REPORT INFORMATION
  Report Type: Spontaneous
  Country: EU (occurrence: EU)
  Receive Date: 20251208
  Receipt Date: 20251208
  Transmission Date: 20260117
  Serious: Yes (Other)
  Sender: ORGANON
  Company Number: None

PATIENT
  Age: 54 Year
  Sex: Female

DRUGS (2)
  1. BETAMETHASONE ACETATE\BETAMETHASONE SODIUM PHOSPHATE [Suspect]
     Active Substance: BETAMETHASONE ACETATE\BETAMETHASONE SODIUM PHOSPHATE
     Indication: Greater trochanteric pain syndrome
     Dosage: 2 MILLILITER, ONCE (1 VIAL OF 2 ML)
     Dates: start: 20251010, end: 20251010
  2. MEPIVACAINE HYDROCHLORIDE [Concomitant]
     Active Substance: MEPIVACAINE HYDROCHLORIDE
     Indication: Greater trochanteric pain syndrome
     Dosage: UNK
     Dates: start: 20251010, end: 20251010

REACTIONS (3)
  - Erythema [Recovered/Resolved]
  - Palatal oedema [Recovered/Resolved]
  - Oropharyngeal erythema [Recovered/Resolved]

NARRATIVE: CASE EVENT DATE: 20251011
